FAERS Safety Report 4988353-7 (Version None)
Quarter: 2006Q2

REPORT INFORMATION
  Report Type: 
  Country: None (occurrence: None)
  Receive Date: 20060426
  Receipt Date: 20060419
  Transmission Date: 20061013
  Serious: No
  Sender: FDA-Public Use
  Company Number: 06H-163-0307292-00

PATIENT
  Age: 71 Year
  Sex: Male

DRUGS (3)
  1. EPINEPHRINE [Suspect]
     Dosage: OPHTHALMIC
     Route: 047
     Dates: start: 20060328, end: 20060328
  2. BSS [Suspect]
     Indication: EYE IRRIGATION
     Dosage: OPHTHALMIC
     Route: 047
     Dates: start: 20060328, end: 20060328
  3. BETADINE [Suspect]
     Indication: PREOPERATIVE CARE
     Dosage: TOPICAL
     Route: 061
     Dates: start: 20060328, end: 20060328

REACTIONS (3)
  - CATARACT OPERATION COMPLICATION [None]
  - ENDOPHTHALMITIS [None]
  - EYE INFECTION BACTERIAL [None]
